FAERS Safety Report 4870402-8 (Version None)
Quarter: 2005Q4

REPORT INFORMATION
  Report Type: 
  Country: None (occurrence: None)
  Receive Date: 20051228
  Receipt Date: 20051219
  Transmission Date: 20060501
  Serious: Yes (Hospitalization)
  Sender: FDA-Public Use
  Company Number: PAR_0450_2005

PATIENT
  Age: 60 Year
  Sex: Female
  Weight: 68.0396 kg

DRUGS (8)
  1. DEXAMETHASONE TAB [Suspect]
     Indication: MYELODYSPLASTIC SYNDROME
     Dosage: 4 MG QDAY PO
     Route: 048
     Dates: start: 20051107
  2. ASCORBIC ACID [Suspect]
     Indication: MYELODYSPLASTIC SYNDROME
     Dosage: DF
  3. THALIDOMIDE [Suspect]
     Indication: MYELODYSPLASTIC SYNDROME
     Dosage: 50 MG QHS PO
     Route: 048
     Dates: start: 20051107
  4. TRISENOX [Suspect]
     Indication: MYELODYSPLASTIC SYNDROME
     Dosage: 17.04 MG QDAY IV
     Route: 042
     Dates: start: 20051107, end: 20051111
  5. TRISENOX [Suspect]
     Indication: MYELODYSPLASTIC SYNDROME
     Dosage: 17.04 MG Q 3RD DAY IV
     Route: 042
     Dates: start: 20051112
  6. FOSAMAX [Concomitant]
  7. FLEXERIL [Concomitant]
  8. LUNESTA [Concomitant]

REACTIONS (2)
  - NEUTROPHIL COUNT DECREASED [None]
  - PYREXIA [None]
